FAERS Safety Report 25478295 (Version 1)
Quarter: 2025Q2

REPORT INFORMATION
  Report Type: Spontaneous
  Country: NL (occurrence: NL)
  Receive Date: 20250625
  Receipt Date: 20250625
  Transmission Date: 20250716
  Serious: Yes (Hospitalization, Other)
  Sender: MYLAN
  Company Number: NL-TEVA-VS-3339396

PATIENT
  Age: 75 Year
  Sex: Male

DRUGS (8)
  1. PREDNISONE [Suspect]
     Active Substance: PREDNISONE
     Indication: Immune-mediated myocarditis
  2. PREDNISONE [Suspect]
     Active Substance: PREDNISONE
     Indication: Overlap syndrome
  3. PREDNISONE [Suspect]
     Active Substance: PREDNISONE
     Indication: Immune-mediated myasthenia gravis
  4. METHYLPREDNISOLONE [Suspect]
     Active Substance: METHYLPREDNISOLONE
     Indication: Immune-mediated myocarditis
  5. METHYLPREDNISOLONE [Suspect]
     Active Substance: METHYLPREDNISOLONE
     Indication: Overlap syndrome
  6. METHYLPREDNISOLONE [Suspect]
     Active Substance: METHYLPREDNISOLONE
     Indication: Immune-mediated myasthenia gravis
  7. IPILIMUMAB [Suspect]
     Active Substance: IPILIMUMAB
     Indication: Epithelioid mesothelioma
  8. NIVOLUMAB [Suspect]
     Active Substance: NIVOLUMAB
     Indication: Epithelioid mesothelioma

REACTIONS (5)
  - Immune-mediated myasthenia gravis [Unknown]
  - Overlap syndrome [Unknown]
  - Rebound effect [Unknown]
  - Immune-mediated myocarditis [Unknown]
  - Cognitive disorder [Unknown]
